FAERS Safety Report 10443956 (Version 1)
Quarter: 2014Q3

REPORT INFORMATION
  Report Type: Spontaneous
  Country: US (occurrence: US)
  Receive Date: 20140910
  Receipt Date: 20140910
  Transmission Date: 20150326
  Serious: No
  Sender: FDA-Public Use
  Company Number: US-TARO-2014P1001074

PATIENT
  Sex: Male
  Weight: 101.15 kg

DRUGS (12)
  1. UNSPECIFIED VITAMINS [Concomitant]
  2. WARFARIN 4 MG (BARR) [Suspect]
     Active Substance: WARFARIN
     Route: 048
     Dates: start: 201401
  3. OXYBUTYNIN [Concomitant]
     Active Substance: OXYBUTYNIN
     Dosage: 5 MG
  4. WARFARIN SODIUM TABLETS USP 5MG [Suspect]
     Active Substance: WARFARIN SODIUM
     Route: 048
     Dates: start: 201312, end: 201401
  5. WARFARIN 10 MG (BARR) [Suspect]
     Active Substance: WARFARIN
     Route: 048
     Dates: end: 201312
  6. WARFARIN 4 MG (BARR) [Suspect]
     Active Substance: WARFARIN
     Route: 048
     Dates: start: 201312, end: 201401
  7. VITAMIN D [Concomitant]
     Active Substance: CHOLECALCIFEROL
  8. WARFARIN SODIUM TABLETS USP 1MG [Suspect]
     Active Substance: WARFARIN SODIUM
     Route: 048
     Dates: end: 201312
  9. FINASTERIDE. [Concomitant]
     Active Substance: FINASTERIDE
  10. ASACOL [Concomitant]
     Active Substance: MESALAMINE
  11. SIMVASTATIN. [Concomitant]
     Active Substance: SIMVASTATIN
     Dosage: 10 MG
  12. HYTRIN [Concomitant]
     Active Substance: TERAZOSIN HYDROCHLORIDE

REACTIONS (3)
  - International normalised ratio increased [Unknown]
  - Device dislocation [Unknown]
  - Weight decreased [Unknown]
